FAERS Safety Report 17393541 (Version 2)
Quarter: 2020Q1

REPORT INFORMATION
  Report Type: Report from Study
  Country: None (occurrence: CH)
  Receive Date: 20200208
  Receipt Date: 20200218
  Transmission Date: 20200409
  Serious: Yes (Hospitalization, Other)
  Sender: FDA-Public Use
  Company Number: CH-ABBVIE-20K-151-3257344-00

PATIENT
  Age: 75 Year
  Sex: Male

DRUGS (6)
  1. DUODOPA [Suspect]
     Active Substance: CARBIDOPA\LEVODOPA
     Indication: PARKINSON^S DISEASE
     Dosage: 1 CASSETTE PER DAY
     Route: 050
     Dates: start: 20170515, end: 20180103
  2. DUODOPA [Suspect]
     Active Substance: CARBIDOPA\LEVODOPA
     Dosage: MD 7 ML, CD-DAY: 3.8 ML/H, CR-NIGHT: 0 ML/H, ED: 1 ML/H.?FREQUENCY TEXT 16H THERAPY
     Route: 050
     Dates: start: 20180103, end: 20180816
  3. DUODOPA [Suspect]
     Active Substance: CARBIDOPA\LEVODOPA
     Dosage: MD 4 ML, CONTINUOUS RATE-DAY: 3 ML/H, CONTINUOUS?RATE-NIGHT: 0 ML/H, ED: 1 ML/H.
     Route: 050
     Dates: start: 20200203
  4. DUODOPA [Suspect]
     Active Substance: CARBIDOPA\LEVODOPA
     Dosage: UNKNOWN DOSES, NO MORNING DOSE?FREQUENCY TEXT 24H THERAPY
     Route: 050
     Dates: start: 20200203, end: 20200203
  5. DUODOPA [Suspect]
     Active Substance: CARBIDOPA\LEVODOPA
     Dosage: MD 4 ML, CR-DAY: 3 ML/H, CR -NIGHT: 0 ML/H, ED: 1 ML/H.?FREQUENCY TEXT 16H THERAPY
     Route: 050
  6. DUODOPA [Suspect]
     Active Substance: CARBIDOPA\LEVODOPA
     Dosage: MD 4 ML, CR-DAY: 2.5 ML/H, CR -NIGHT: 0 ML/H, ED: 1 ML/H.?FREQUENCY TEXT 16H THERAPY
     Route: 050
     Dates: start: 20180816

REACTIONS (13)
  - Embedded device [Unknown]
  - Pathogen resistance [Unknown]
  - Stoma complication [Not Recovered/Not Resolved]
  - Device connection issue [Recovered/Resolved]
  - Medical device removal [Recovered/Resolved]
  - Device alarm issue [Recovered/Resolved]
  - General physical health deterioration [Unknown]
  - Vomiting [Unknown]
  - Device embolisation [Recovered/Resolved]
  - Product prescribing issue [Recovered/Resolved]
  - Akinesia [Unknown]
  - Gastric disorder [Unknown]
  - Off label use [Recovered/Resolved]

NARRATIVE: CASE EVENT DATE: 201911
